FAERS Safety Report 5119664-2 (Version None)
Quarter: 2006Q4

REPORT INFORMATION
  Report Type: 
  Country: None (occurrence: None)
  Receive Date: 20061003
  Receipt Date: 20060922
  Transmission Date: 20070319
  Serious: Yes (Death)
  Sender: FDA-Public Use
  Company Number: JP-ROCHE-464710

PATIENT
  Age: 73 Year
  Sex: Female
  Weight: 45 kg

DRUGS (3)
  1. ROCEPHIN [Suspect]
     Indication: PNEUMONIA
     Dosage: REPORTED AS ROCEPHIN 1G BAG.
     Route: 041
     Dates: start: 20060314, end: 20060323
  2. FUNGUARD [Concomitant]
     Route: 041
     Dates: start: 20060313, end: 20060323
  3. REMINARON [Concomitant]
     Route: 041
     Dates: start: 20060322

REACTIONS (1)
  - RENAL TUBULAR ACIDOSIS [None]
